FAERS Safety Report 4917556-2 (Version None)
Quarter: 2006Q1

REPORT INFORMATION
  Report Type: 
  Country: None (occurrence: None)
  Receive Date: 20060221
  Receipt Date: 20050919
  Transmission Date: 20060701
  Serious: Yes (Hospitalization, Other)
  Sender: FDA-Public Use
  Company Number: US-MERCK-0509USA02850

PATIENT
  Sex: Female
  Weight: 73 kg

DRUGS (25)
  1. VIOXX [Suspect]
     Indication: ARTHRALGIA
     Route: 048
     Dates: start: 19990101, end: 20010101
  2. BEXTRA [Suspect]
     Route: 065
  3. EFFEXOR [Concomitant]
     Route: 065
  4. WELLBUTRIN [Concomitant]
     Route: 065
  5. CELEBREX [Suspect]
     Route: 065
  6. DURAGESIC-100 [Concomitant]
     Route: 065
  7. LEXAPRO [Concomitant]
     Route: 065
  8. LIDOCAINE [Concomitant]
     Route: 065
  9. MS CONTIN [Concomitant]
     Route: 065
  10. TOPAMAX [Concomitant]
     Route: 065
  11. VICODIN [Concomitant]
     Route: 065
  12. PERCOCET [Concomitant]
     Route: 065
  13. METHADOSE [Concomitant]
     Route: 065
  14. NEXIUM [Concomitant]
     Route: 065
  15. ZANAFLEX [Concomitant]
     Route: 065
  16. PRILOSEC [Concomitant]
     Route: 065
  17. METHYLPREDNISOLONE [Concomitant]
     Route: 065
  18. VALIUM [Concomitant]
     Route: 065
  19. CYMBALTA [Concomitant]
     Route: 065
  20. PAXIL [Concomitant]
     Route: 065
  21. KEPPRA [Concomitant]
     Route: 065
  22. ELAVIL [Concomitant]
     Route: 065
  23. IMITREX [Concomitant]
     Route: 065
  24. CELEBREX [Concomitant]
     Route: 065
  25. MSIR [Concomitant]
     Route: 065

REACTIONS (17)
  - ARTHRALGIA [None]
  - CARDIAC FAILURE [None]
  - CEREBROVASCULAR ACCIDENT [None]
  - CHEST PAIN [None]
  - DYSPHAGIA [None]
  - FIBROMYALGIA [None]
  - GALLBLADDER DISORDER [None]
  - HEPATOCELLULAR DAMAGE [None]
  - MYOCARDIAL INFARCTION [None]
  - PAIN [None]
  - PALPITATIONS [None]
  - RENAL DISORDER [None]
  - RENAL INJURY [None]
  - SKIN INJURY [None]
  - SPINAL CORD DISORDER [None]
  - THROMBOSIS [None]
  - ULCER [None]
